FAERS Safety Report 15750883 (Version 1)
Quarter: 2018Q4

REPORT INFORMATION
  Report Type: Spontaneous
  Country: FR (occurrence: FR)
  Receive Date: 20181221
  Receipt Date: 20181221
  Transmission Date: 20190205
  Serious: Yes (Hospitalization)
  Sender: FDA-Public Use
  Company Number: FR-TEVA-2018-FR-988584

PATIENT
  Age: 39 Year
  Sex: Female

DRUGS (5)
  1. SODIUM CHLORIDE SALINE [Suspect]
     Active Substance: SODIUM CHLORIDE
     Route: 050
  2. METHYLPREDNISOLONE. [Suspect]
     Active Substance: METHYLPREDNISOLONE
     Route: 065
  3. AMOXICILLIN. [Suspect]
     Active Substance: AMOXICILLIN
     Indication: ANTIBIOTIC PROPHYLAXIS
     Route: 065
  4. PENTASTARCH [Suspect]
     Active Substance: PENTASTARCH
     Route: 065
  5. EPINEPHRINE. [Suspect]
     Active Substance: EPINEPHRINE
     Indication: BRONCHOSPASM
     Route: 042

REACTIONS (4)
  - Uterine hypertonus [Unknown]
  - Anaphylactic reaction [Unknown]
  - Maternal exposure during pregnancy [Unknown]
  - Maternal exposure during delivery [Unknown]
